FAERS Safety Report 21623815 (Version 2)
Quarter: 2022Q4

REPORT INFORMATION
  Report Type: Spontaneous
  Country: CN (occurrence: CN)
  Receive Date: 20221121
  Receipt Date: 20221125
  Transmission Date: 20230112
  Serious: Yes (Life-Threatening, Other)
  Sender: FDA-Public Use
  Company Number: CN-SA-2022SA467671

PATIENT
  Age: 53 Year
  Sex: Male

DRUGS (28)
  1. OXALIPLATIN [Suspect]
     Active Substance: OXALIPLATIN
     Indication: Small intestine adenocarcinoma
     Dosage: 220 MG, QCY
     Route: 042
     Dates: start: 20210411, end: 2021
  2. OXALIPLATIN [Suspect]
     Active Substance: OXALIPLATIN
     Indication: Metastases to liver
     Dosage: 220 MG, QCY
     Route: 042
     Dates: start: 20210511, end: 2021
  3. OXALIPLATIN [Suspect]
     Active Substance: OXALIPLATIN
     Indication: Malignant neoplasm of ampulla of Vater
     Dosage: 220 MG, QCY
     Route: 042
     Dates: start: 20210608, end: 2021
  4. OXALIPLATIN [Suspect]
     Active Substance: OXALIPLATIN
     Dosage: 220 MG, QCY
     Route: 042
     Dates: start: 20210707, end: 2021
  5. OXALIPLATIN [Suspect]
     Active Substance: OXALIPLATIN
     Dosage: 220 MG, QCY
     Route: 042
     Dates: start: 20210815, end: 2021
  6. OXALIPLATIN [Suspect]
     Active Substance: OXALIPLATIN
     Dosage: 220 MG, QCY
     Route: 042
     Dates: start: 20210913, end: 2021
  7. OXALIPLATIN [Suspect]
     Active Substance: OXALIPLATIN
     Dosage: 220 MG, QCY
     Route: 042
     Dates: start: 20211010, end: 2021
  8. OXALIPLATIN [Suspect]
     Active Substance: OXALIPLATIN
     Dosage: 220 MG, QCY
     Route: 042
     Dates: start: 20211112, end: 2021
  9. OXALIPLATIN [Suspect]
     Active Substance: OXALIPLATIN
     Dosage: 220 MG, QCY
     Route: 042
     Dates: start: 20211220
  10. CAPECITABINE [Suspect]
     Active Substance: CAPECITABINE
     Indication: Small intestine adenocarcinoma
     Dosage: UNK UNK, QCY
     Route: 048
     Dates: start: 20210411
  11. CAPECITABINE [Suspect]
     Active Substance: CAPECITABINE
     Indication: Metastases to liver
  12. CAPECITABINE [Suspect]
     Active Substance: CAPECITABINE
     Indication: Malignant neoplasm of ampulla of Vater
  13. GIMERACIL\OTERACIL\TEGAFUR [Suspect]
     Active Substance: GIMERACIL\OTERACIL\TEGAFUR
     Indication: Small intestine adenocarcinoma
     Dosage: EACH TIME 60 MG, TWICE DAILY FOR 14 CONSECUTIVE DAYS PER TREATMENT CYCLE
     Route: 048
     Dates: start: 20210511
  14. GIMERACIL\OTERACIL\TEGAFUR [Suspect]
     Active Substance: GIMERACIL\OTERACIL\TEGAFUR
     Indication: Metastases to liver
     Dosage: EACH TIME 60 MG, TWICE DAILY FOR 14 CONSECUTIVE DAYS PER TREATMENT CYCLE
     Route: 048
     Dates: start: 20210608, end: 202106
  15. GIMERACIL\OTERACIL\TEGAFUR [Suspect]
     Active Substance: GIMERACIL\OTERACIL\TEGAFUR
     Indication: Malignant neoplasm of ampulla of Vater
     Dosage: EACH TIME 60 MG, TWICE DAILY FOR 14 CONSECUTIVE DAYS PER TREATMENT CYCLE
     Route: 048
     Dates: start: 20210707, end: 202107
  16. GIMERACIL\OTERACIL\TEGAFUR [Suspect]
     Active Substance: GIMERACIL\OTERACIL\TEGAFUR
     Dosage: EACH TIME 60 MG, TWICE DAILY FOR 14 CONSECUTIVE DAYS PER TREATMENT CYCLE
     Route: 048
     Dates: start: 20210815, end: 202108
  17. GIMERACIL\OTERACIL\TEGAFUR [Suspect]
     Active Substance: GIMERACIL\OTERACIL\TEGAFUR
     Dosage: EACH TIME 60 MG, TWICE DAILY FOR 14 CONSECUTIVE DAYS PER TREATMENT CYCLE
     Route: 048
     Dates: start: 20210913, end: 202109
  18. GIMERACIL\OTERACIL\TEGAFUR [Suspect]
     Active Substance: GIMERACIL\OTERACIL\TEGAFUR
     Dosage: EACH TIME 60 MG, TWICE DAILY FOR 14 CONSECUTIVE DAYS PER TREATMENT CYCLE
     Route: 048
     Dates: start: 20211010, end: 202110
  19. GIMERACIL\OTERACIL\TEGAFUR [Suspect]
     Active Substance: GIMERACIL\OTERACIL\TEGAFUR
     Dosage: EACH TIME 60 MG, TWICE DAILY FOR 14 CONSECUTIVE DAYS PER TREATMENT CYCLE
     Route: 048
     Dates: start: 20211112, end: 202111
  20. GIMERACIL\OTERACIL\TEGAFUR [Suspect]
     Active Substance: GIMERACIL\OTERACIL\TEGAFUR
     Dosage: EACH TIME 60 MG, TWICE DAILY FOR 14 CONSECUTIVE DAYS PER TREATMENT CYCLE
     Route: 048
     Dates: start: 20211220
  21. BEVACIZUMAB [Suspect]
     Active Substance: BEVACIZUMAB
     Indication: Small intestine adenocarcinoma
     Dosage: 5 MG/KG, QCY
     Route: 042
     Dates: start: 20210511, end: 2021
  22. BEVACIZUMAB [Suspect]
     Active Substance: BEVACIZUMAB
     Indication: Metastases to liver
     Dosage: 5 MG/KG, QCY
     Route: 042
     Dates: start: 20210608, end: 2021
  23. BEVACIZUMAB [Suspect]
     Active Substance: BEVACIZUMAB
     Indication: Malignant neoplasm of ampulla of Vater
     Dosage: 5 MG/KG, QCY
     Route: 042
     Dates: start: 20210707, end: 2021
  24. BEVACIZUMAB [Suspect]
     Active Substance: BEVACIZUMAB
     Dosage: 5 MG/KG, QCY
     Route: 042
     Dates: start: 20210815, end: 2021
  25. BEVACIZUMAB [Suspect]
     Active Substance: BEVACIZUMAB
     Dosage: 5 MG/KG, QCY
     Route: 042
     Dates: start: 20210913, end: 2021
  26. BEVACIZUMAB [Suspect]
     Active Substance: BEVACIZUMAB
     Dosage: 5 MG/KG, QCY
     Route: 042
     Dates: start: 20211010, end: 2021
  27. BEVACIZUMAB [Suspect]
     Active Substance: BEVACIZUMAB
     Dosage: 5 MG/KG, QCY
     Route: 042
     Dates: start: 20211112, end: 2021
  28. BEVACIZUMAB [Suspect]
     Active Substance: BEVACIZUMAB
     Dosage: 5 MG/KG, QCY
     Route: 042
     Dates: start: 20211220

REACTIONS (11)
  - Palmar-plantar erythrodysaesthesia syndrome [Unknown]
  - Drug intolerance [Unknown]
  - Peripheral swelling [Unknown]
  - Pain in extremity [Unknown]
  - Skin exfoliation [Unknown]
  - Skin ulcer [Unknown]
  - Blister [Unknown]
  - Erythema [Unknown]
  - Myelosuppression [Unknown]
  - Peripheral sensory neuropathy [Unknown]
  - Infection [Unknown]

NARRATIVE: CASE EVENT DATE: 20210101
